FAERS Safety Report 16292800 (Version 1)
Quarter: 2019Q2

REPORT INFORMATION
  Report Type: Spontaneous
  Country: CN (occurrence: CN)
  Receive Date: 20190509
  Receipt Date: 20190509
  Transmission Date: 20190711
  Serious: Yes (Other)
  Sender: FDA-Public Use
  Company Number: CN-PFIZER INC-2019189594

PATIENT
  Age: 80 Year
  Sex: Male

DRUGS (1)
  1. PACLITAXEL. [Suspect]
     Active Substance: PACLITAXEL
     Indication: PERIPHERAL ARTERY STENOSIS

REACTIONS (1)
  - Arterial thrombosis [Recovering/Resolving]
